FAERS Safety Report 7197091-4 (Version None)
Quarter: 2010Q4

REPORT INFORMATION
  Report Type: 
  Country: None (occurrence: None)
  Receive Date: 20101224
  Receipt Date: 20101217
  Transmission Date: 20110411
  Serious: Yes (Other)
  Sender: FDA-Public Use
  Company Number: SI-BRISTOL-MYERS SQUIBB COMPANY-15447139

PATIENT
  Age: 36 Year
  Sex: Female

DRUGS (2)
  1. AMIKIN [Suspect]
     Indication: BRONCHIECTASIS
     Route: 042
  2. CEFTAZIDIME (FORTAZ) [Suspect]
     Indication: BRONCHIECTASIS

REACTIONS (2)
  - HALLUCINATION, VISUAL [None]
  - PHOTOPSIA [None]
